FAERS Safety Report 5235186-2 (Version None)
Quarter: 2007Q1

REPORT INFORMATION
  Report Type: 
  Country: None (occurrence: None)
  Receive Date: 20070208
  Receipt Date: 20070208
  Transmission Date: 20070707
  Serious: No
  Sender: FDA-Public Use
  Company Number: None

PATIENT
  Age: 42 Year
  Sex: Female

DRUGS (2)
  1. VENLAFAXINE HCL [Suspect]
     Indication: BIPOLAR DISORDER
     Dosage: 200 MG QAM 150 MG PM
  2. VENLAFAXINE HCL [Suspect]
     Indication: DEPRESSION
     Dosage: 200 MG QAM 150 MG PM

REACTIONS (2)
  - NAUSEA [None]
  - VOMITING [None]
